FAERS Safety Report 15611900 (Version 1)
Quarter: 2018Q4

REPORT INFORMATION
  Report Type: Spontaneous
  Country: US (occurrence: US)
  Receive Date: 20181113
  Receipt Date: 20181113
  Transmission Date: 20190205
  Serious: No
  Sender: FDA-Public Use
  Company Number: US-SA-2018SA309995

PATIENT
  Age: 60 Year
  Sex: Female

DRUGS (5)
  1. ERYTHROMYCINE [ERYTHROMYCIN] [Concomitant]
  2. AVENOVA [Concomitant]
     Active Substance: HYPOCHLOROUS ACID
  3. DUPIXENT [Suspect]
     Active Substance: DUPILUMAB
     Indication: DERMATITIS ATOPIC
     Dosage: 300 MG, QOW
     Route: 058
     Dates: start: 20180713
  4. CALCIUM CARBONATE. [Concomitant]
     Active Substance: CALCIUM CARBONATE
  5. DOXYCYCLINE MONOHYDRATE [Concomitant]
     Active Substance: DOXYCYCLINE
     Dosage: 100 MG

REACTIONS (8)
  - Myalgia [Unknown]
  - Erythema [Unknown]
  - Ocular hyperaemia [Unknown]
  - Eye irritation [Unknown]
  - Pruritus [Unknown]
  - Dermatitis [Unknown]
  - Rash [Unknown]
  - Eye swelling [Unknown]

NARRATIVE: CASE EVENT DATE: 2018
